FAERS Safety Report 21323901 (Version 1)
Quarter: 2022Q3

REPORT INFORMATION
  Report Type: Spontaneous
  Country: CN (occurrence: CN)
  Receive Date: 20220912
  Receipt Date: 20220912
  Transmission Date: 20221027
  Serious: Yes (Other)
  Sender: FDA-Public Use
  Company Number: CN-PFIZER INC-PV202200060162

PATIENT
  Age: 70 Year
  Sex: Male
  Weight: 52 kg

DRUGS (3)
  1. CELECOXIB [Suspect]
     Active Substance: CELECOXIB
     Indication: Facial nerve disorder
     Dosage: 0.2 G, 1X/DAY
     Route: 048
     Dates: start: 20220831, end: 20220901
  2. CELECOXIB [Suspect]
     Active Substance: CELECOXIB
     Indication: Facial pain
  3. METHYLCOBALAMIN [Concomitant]
     Active Substance: METHYLCOBALAMIN
     Indication: Facial nerve disorder
     Dosage: 0.5 MG, 3X/DAY
     Route: 048
     Dates: start: 20220831, end: 20220901

REACTIONS (7)
  - Pruritus [Recovering/Resolving]
  - Rash pruritic [Recovering/Resolving]
  - Genital rash [Recovering/Resolving]
  - Pruritus genital [Recovering/Resolving]
  - Perineal swelling [Recovering/Resolving]
  - Skin swelling [Recovering/Resolving]
  - Drug hypersensitivity [Recovering/Resolving]

NARRATIVE: CASE EVENT DATE: 20220831
